FAERS Safety Report 24216005 (Version 1)
Quarter: 2024Q3

REPORT INFORMATION
  Report Type: Spontaneous
  Country: US (occurrence: US)
  Receive Date: 20240816
  Receipt Date: 20240816
  Transmission Date: 20241016
  Serious: No
  Sender: BRISTOL MYERS SQUIBB
  Company Number: US-BRISTOL-MYERS SQUIBB COMPANY-2024-128562

PATIENT

DRUGS (2)
  1. OPDIVO [Interacting]
     Active Substance: NIVOLUMAB
     Indication: Colon cancer
  2. ORENCIA [Interacting]
     Active Substance: ABATACEPT
     Indication: Product used for unknown indication

REACTIONS (2)
  - Rash [Unknown]
  - Drug interaction [Unknown]
